FAERS Safety Report 7556791-4 (Version None)
Quarter: 2011Q2

REPORT INFORMATION
  Report Type: 
  Country: None (occurrence: None)
  Receive Date: 20110620
  Receipt Date: 20110614
  Transmission Date: 20111010
  Serious: Yes (Other)
  Sender: FDA-Public Use
  Company Number: US-PFIZER INC-2011131990

PATIENT
  Sex: Female

DRUGS (3)
  1. DETROL LA [Suspect]
  2. PREMARIN [Suspect]
  3. DIFLUCAN [Suspect]

REACTIONS (2)
  - ASTHMA [None]
  - CYSTITIS [None]
